FAERS Safety Report 23261893 (Version 4)
Quarter: 2024Q1

REPORT INFORMATION
  Report Type: Spontaneous
  Country: DE (occurrence: DE)
  Receive Date: 20231205
  Receipt Date: 20240213
  Transmission Date: 20240410
  Serious: Yes (Other)
  Sender: FDA-Public Use
  Company Number: DE-BAYER-2023A169998

PATIENT
  Age: 29 Year
  Sex: Female

DRUGS (1)
  1. PRIMOVIST [Suspect]
     Active Substance: GADOXETATE DISODIUM

REACTIONS (3)
  - Injury associated with device [Recovered/Resolved]
  - Hypoaesthesia [Not Recovered/Not Resolved]
  - Syringe issue [None]

NARRATIVE: CASE EVENT DATE: 20231120
